FAERS Safety Report 6032454-1 (Version None)
Quarter: 2009Q1

REPORT INFORMATION
  Report Type: 
  Country: None (occurrence: None)
  Receive Date: 20090109
  Receipt Date: 20081231
  Transmission Date: 20090719
  Serious: Yes (Hospitalization)
  Sender: FDA-Public Use
  Company Number: US-BIOGENIDEC-2008BI035168

PATIENT
  Age: 35 Year
  Sex: Male
  Weight: 56 kg

DRUGS (1)
  1. AVONEX [Suspect]
     Indication: MULTIPLE SCLEROSIS
     Route: 030
     Dates: start: 20081217

REACTIONS (3)
  - BALANCE DISORDER [None]
  - COORDINATION ABNORMAL [None]
  - FALL [None]
